FAERS Safety Report 15757131 (Version 1)
Quarter: 2018Q4

REPORT INFORMATION
  Report Type: Spontaneous
  Country: MY (occurrence: MY)
  Receive Date: 20181224
  Receipt Date: 20181224
  Transmission Date: 20190205
  Serious: Yes (Other)
  Sender: FDA-Public Use
  Company Number: MY-PFIZER INC-2018526466

PATIENT
  Age: 70 Year
  Sex: Female

DRUGS (5)
  1. CLOXACILLIN [Suspect]
     Active Substance: CLOXACILLIN
     Indication: STAPHYLOCOCCAL BACTERAEMIA
  2. INSULIN [Concomitant]
     Active Substance: INSULIN NOS
     Dosage: UNK
  3. MEROPENEM. [Suspect]
     Active Substance: MEROPENEM
     Indication: KLEBSIELLA INFECTION
     Dosage: 1 G, 3X/DAY
     Route: 042
  4. CLOXACILLIN [Suspect]
     Active Substance: CLOXACILLIN
     Indication: DECUBITUS ULCER
  5. CLOXACILLIN [Suspect]
     Active Substance: CLOXACILLIN
     Indication: BACTERIAL SEPSIS
     Dosage: 1 G, 3X/DAY
     Route: 042

REACTIONS (1)
  - Systemic candida [Not Recovered/Not Resolved]
